FAERS Safety Report 6979051-9 (Version None)
Quarter: 2010Q3

REPORT INFORMATION
  Report Type: 
  Country: None (occurrence: None)
  Receive Date: 20100908
  Receipt Date: 20100830
  Transmission Date: 20110219
  Serious: Yes (Hospitalization)
  Sender: FDA-Public Use
  Company Number: US-003568

PATIENT
  Sex: Female
  Weight: 87.0906 kg

DRUGS (2)
  1. TRANEXAMIC ACID [Suspect]
     Indication: PRODUCT USED FOR UNKNOWN INDICATION
     Dosage: (1300 MG TID)
     Dates: start: 20100818, end: 20100820
  2. LOESTRIN 1.5/30 [Concomitant]

REACTIONS (4)
  - CEREBROVASCULAR ACCIDENT [None]
  - HAEMATOCRIT DECREASED [None]
  - HAEMORRHAGE [None]
  - MYOMECTOMY [None]
